FAERS Safety Report 8133586-4 (Version None)
Quarter: 2012Q1

REPORT INFORMATION
  Report Type: 
  Country: None (occurrence: None)
  Receive Date: 20120213
  Receipt Date: 20120201
  Transmission Date: 20120608
  Serious: Yes (Other)
  Sender: FDA-Public Use
  Company Number: NL-ELI_LILLY_AND_COMPANY-NL201110006228

PATIENT
  Age: 64 Year
  Sex: Male

DRUGS (12)
  1. NEXIUM [Concomitant]
     Dosage: 20 MG, QD
     Route: 065
  2. ARTANE [Concomitant]
     Dosage: 5 MG, BID
     Route: 065
  3. FLUANXOL [Concomitant]
     Dosage: 100 MG, ONE PER 21 DAYS
     Route: 030
     Dates: end: 20111014
  4. OLANZAPINE [Suspect]
     Dosage: 210 MG, UNKNOWN
     Route: 030
     Dates: start: 20111019
  5. DEPAKENE [Concomitant]
     Dosage: 1000 MG, BID
     Route: 065
  6. CARBASALAATCALCIUM [Concomitant]
     Dosage: 300 MG, QD
     Route: 065
     Dates: start: 20111015
  7. LACTULOSESTROOP [Concomitant]
     Dosage: 30 MG, QD
     Route: 065
  8. BENZODIAZEPINE DERIVATIVES [Concomitant]
     Dosage: 5 MG, UNKNOWN
     Route: 065
  9. SIMVASTATIN [Concomitant]
     Dosage: 40 MG, QD
     Route: 065
     Dates: start: 20111015
  10. ZYBAN [Concomitant]
     Dosage: 150 MG, QD
     Route: 065
  11. OLANZAPINE [Suspect]
     Dosage: 210 MG, EVERY 2 WEEKS
     Route: 030
     Dates: start: 20111005
  12. DIPYRIDAMOL [Concomitant]
     Dosage: 200 MG, QD
     Route: 065
     Dates: start: 20111015

REACTIONS (7)
  - MUSCULAR WEAKNESS [None]
  - HYPOTENSION [None]
  - AGITATION [None]
  - SEDATION [None]
  - DISORIENTATION [None]
  - VASCULAR STENOSIS [None]
  - TRANSIENT ISCHAEMIC ATTACK [None]
